FAERS Safety Report 9148406 (Version 1)
Quarter: 2013Q1

REPORT INFORMATION
  Report Type: Spontaneous
  Country: US (occurrence: None)
  Receive Date: 20130228
  Receipt Date: 20130228
  Transmission Date: 20140127
  Serious: Yes (Life-Threatening, Hospitalization, Disabling, Other)
  Sender: FDA-Public Use
  Company Number: None

PATIENT
  Age: 86 Year
  Sex: Male
  Weight: 78.93 kg

DRUGS (2)
  1. METOPROLOL [Suspect]
     Indication: CARDIAC DISORDER
     Dates: start: 20090801, end: 20130103
  2. SIMVASTATIN [Suspect]
     Dates: start: 20090801, end: 20130103

REACTIONS (8)
  - Confusional state [None]
  - Mood swings [None]
  - Mental disorder [None]
  - Amnesia [None]
  - Paranoia [None]
  - Insomnia [None]
  - Agitation [None]
  - Dementia [None]
